FAERS Safety Report 16665263 (Version 1)
Quarter: 2019Q3

REPORT INFORMATION
  Report Type: Spontaneous
  Country: US (occurrence: US)
  Receive Date: 20190803
  Receipt Date: 20190803
  Transmission Date: 20191004
  Serious: Yes (Other)
  Sender: FDA-Public Use
  Company Number: US-ACCORD-125866

PATIENT
  Age: 49 Year
  Sex: Female

DRUGS (13)
  1. NEULASTA [Concomitant]
     Active Substance: PEGFILGRASTIM
     Dates: start: 201304, end: 201307
  2. CYTOXAN [Suspect]
     Active Substance: CYCLOPHOSPHAMIDE
     Indication: INVASIVE DUCTAL BREAST CARCINOMA
     Dosage: 2 AND HALF HOURS TREATMENT BAGS
  3. ANASTROZOLE. [Concomitant]
     Active Substance: ANASTROZOLE
     Dates: start: 201208
  4. ACETYLSALICYLIC ACID [Concomitant]
     Active Substance: ASPIRIN
     Dates: start: 200604
  5. FOSAMAX [Concomitant]
     Active Substance: ALENDRONATE SODIUM
  6. TOPROL XL [Concomitant]
     Active Substance: METOPROLOL SUCCINATE
     Dates: start: 2006
  7. XANAX [Concomitant]
     Active Substance: ALPRAZOLAM
     Dates: start: 2006, end: 2013
  8. ZANAFLEX [Concomitant]
     Active Substance: TIZANIDINE HYDROCHLORIDE
     Dates: start: 2006
  9. HYDROMORPHONE/HYDROMORPHONE HYDROCHLORIDE [Concomitant]
     Dates: start: 2006
  10. VALIUM [Concomitant]
     Active Substance: DIAZEPAM
     Dates: start: 2013
  11. DOCETAXEL. [Suspect]
     Active Substance: DOCETAXEL
     Indication: INVASIVE DUCTAL BREAST CARCINOMA
     Dates: start: 201304, end: 201307
  12. WELLBUTRIN [Concomitant]
     Active Substance: BUPROPION HYDROCHLORIDE
     Dates: start: 2006
  13. PRAVASTATIN. [Concomitant]
     Active Substance: PRAVASTATIN
     Dates: start: 2006

REACTIONS (1)
  - Alopecia [Not Recovered/Not Resolved]

NARRATIVE: CASE EVENT DATE: 201304
